FAERS Safety Report 6980036-7 (Version None)
Quarter: 2010Q3

REPORT INFORMATION
  Report Type: 
  Country: None (occurrence: None)
  Receive Date: 20100914
  Receipt Date: 20100902
  Transmission Date: 20110219
  Serious: Yes (Other)
  Sender: FDA-Public Use
  Company Number: SN-PFIZER INC-2010110919

PATIENT
  Age: 39 Year
  Sex: Male
  Weight: 86 kg

DRUGS (3)
  1. SUNITINIB MALATE [Suspect]
     Indication: BRONCHIAL CARCINOMA
     Dosage: 50 MG, 1X/DAY
     Route: 048
     Dates: start: 20100723
  2. CISPLATIN [Suspect]
     Indication: BRONCHIAL CARCINOMA
     Dosage: UNK
     Route: 042
     Dates: start: 20091119
  3. VINORELBINE [Suspect]
     Indication: BRONCHIAL CARCINOMA
     Dosage: 50 MG, 1X/DAY
     Route: 042
     Dates: start: 20091119

REACTIONS (1)
  - NEUROPATHY PERIPHERAL [None]
